FAERS Safety Report 24025087 (Version 1)
Quarter: 2024Q2

REPORT INFORMATION
  Report Type: Spontaneous
  Country: GB (occurrence: GB)
  Receive Date: 20240628
  Receipt Date: 20240628
  Transmission Date: 20240717
  Serious: No
  Sender: FDA-Public Use
  Company Number: None

PATIENT
  Age: 29 Year
  Sex: Female

DRUGS (1)
  1. PHESGO [Suspect]
     Active Substance: HYALURONIDASE-ZZXF\PERTUZUMAB\TRASTUZUMAB
     Indication: Breast cancer
     Dosage: PERTUZUMAB 600MG/TRASTUZUMAB 600MG SC INJ. 10ML - GIVE AS A SUBCUTANEOUS INJECTION OVER 5 MINUTES...
     Route: 058

REACTIONS (4)
  - Fatigue [Unknown]
  - Urinary tract infection [Unknown]
  - Feeling cold [Unknown]
  - Acne [Unknown]

NARRATIVE: CASE EVENT DATE: 20231101
